FAERS Safety Report 9870754 (Version 1)
Quarter: 2014Q1

REPORT INFORMATION
  Report Type: Spontaneous
  Country: US (occurrence: None)
  Receive Date: 20140131
  Receipt Date: 20140131
  Transmission Date: 20141002
  Serious: Yes (Death)
  Sender: FDA-Public Use
  Company Number: IMP_06998_2014

PATIENT
  Age: 63 Year
  Sex: Female

DRUGS (10)
  1. ORPHENADRINE [Suspect]
     Dosage: DF
  2. PROMETHAZINE [Suspect]
     Dosage: DF
  3. BUTALBITAL,ACETAMINOPHEN + CAFFEINE [Suspect]
     Dosage: DF
  4. BUPRENORPHINE [Suspect]
     Dosage: DF
  5. ACETAMINOPHEN W/CODEINE [Suspect]
     Dosage: DF
  6. ACETAMINOPHEN [Suspect]
     Dosage: DF
  7. TRAMADOL [Suspect]
     Dosage: DF
  8. CLONAZEPAM [Suspect]
     Dosage: DF
  9. GABAPENTIN [Suspect]
     Dosage: DF
  10. HYDROXYZINE [Suspect]
     Dosage: DF

REACTIONS (1)
  - Death [None]
